FAERS Safety Report 10944686 (Version 3)
Quarter: 2015Q3

REPORT INFORMATION
  Report Type: Spontaneous
  Country: US (occurrence: US)
  Receive Date: 20150323
  Receipt Date: 20150722
  Transmission Date: 20151125
  Serious: No
  Sender: FDA-Public Use
  Company Number: US-PFIZER INC-2015099247

PATIENT
  Age: 60 Year
  Sex: Male
  Weight: 80 kg

DRUGS (7)
  1. COGENTIN [Suspect]
     Active Substance: BENZTROPINE MESYLATE
     Dosage: UNK
  2. ATENOLOL. [Concomitant]
     Active Substance: ATENOLOL
     Indication: HYPERTENSION
  3. VALPROIC ACID. [Suspect]
     Active Substance: VALPROIC ACID
     Indication: APPETITE DISORDER
  4. RISPERDAL [Suspect]
     Active Substance: RISPERIDONE
     Dosage: UNK
  5. ATENOLOL. [Concomitant]
     Active Substance: ATENOLOL
     Indication: PALPITATIONS
     Dosage: UNK
  6. GEODON [Suspect]
     Active Substance: ZIPRASIDONE HYDROCHLORIDE\ZIPRASIDONE MESYLATE
     Indication: DISTURBANCE IN ATTENTION
     Dosage: UNK
     Dates: start: 2005
  7. VALPROIC ACID. [Suspect]
     Active Substance: VALPROIC ACID
     Indication: NERVOUSNESS
     Dosage: UNK
     Dates: start: 2005

REACTIONS (9)
  - Erectile dysfunction [Recovered/Resolved]
  - Chest discomfort [Unknown]
  - Vision blurred [Recovered/Resolved]
  - Testicular disorder [Recovered/Resolved]
  - Dry mouth [Recovered/Resolved]
  - Hypersomnia [Recovered/Resolved]
  - Gynaecomastia [Recovered/Resolved]
  - Weight increased [Unknown]
  - Hernia [Recovered/Resolved]
